FAERS Safety Report 15431459 (Version 1)
Quarter: 2018Q3

REPORT INFORMATION
  Report Type: Spontaneous
  Country: PT (occurrence: PT)
  Receive Date: 20180926
  Receipt Date: 20180926
  Transmission Date: 20181010
  Serious: Yes (Hospitalization, Other)
  Sender: FDA-Public Use
  Company Number: PT-MYLANLABS-2018M1070195

PATIENT
  Age: 66 Year
  Sex: Female

DRUGS (9)
  1. CYAMEMAZINE [Concomitant]
     Active Substance: CYAMEMAZINE
     Indication: DEPRESSION
     Dosage: 100 MG, QD
  2. NITROFURANTOIN. [Concomitant]
     Active Substance: NITROFURANTOIN
     Indication: CYSTITIS
     Dosage: UNK
  3. LERCANIDIPINE [Concomitant]
     Active Substance: LERCANIDIPINE
     Indication: HYPERTENSION
     Dosage: 20 MG, UNK
  4. CEFTRIAXONE. [Concomitant]
     Active Substance: CEFTRIAXONE
     Indication: ACUTE KIDNEY INJURY
     Dosage: UNK
  5. LORAZEPAM. [Concomitant]
     Active Substance: LORAZEPAM
     Indication: DEPRESSION
     Dosage: 5 MG, QD
  6. CEFTRIAXONE. [Concomitant]
     Active Substance: CEFTRIAXONE
     Indication: PYELONEPHRITIS
  7. ROSUVASTATIN. [Concomitant]
     Active Substance: ROSUVASTATIN
     Indication: DYSLIPIDAEMIA
     Dosage: 10 MG, UNK
  8. VENLAFAXINE [Suspect]
     Active Substance: VENLAFAXINE HYDROCHLORIDE
     Indication: DEPRESSION
     Dosage: 150 MG, QD
     Route: 065
  9. CARBAMAZEPINE. [Concomitant]
     Active Substance: CARBAMAZEPINE
     Indication: DEPRESSION
     Dosage: 400 MG, QD

REACTIONS (2)
  - Pseudophaeochromocytoma [Recovered/Resolved]
  - Overdose [Recovered/Resolved]
